FAERS Safety Report 19576556 (Version 1)
Quarter: 2021Q3

REPORT INFORMATION
  Report Type: Spontaneous
  Country: US (occurrence: US)
  Receive Date: 20210717
  Receipt Date: 20210717
  Transmission Date: 20211014
  Serious: Yes (Death)
  Sender: FDA-Public Use
  Company Number: None

PATIENT
  Age: 84 Year
  Sex: Male

DRUGS (1)
  1. REVLIMID [Suspect]
     Active Substance: LENALIDOMIDE
     Indication: PLASMA CELL MYELOMA
     Route: 048
     Dates: start: 20201023, end: 20201219

REACTIONS (12)
  - Acute respiratory failure [None]
  - Dyspnoea exertional [None]
  - Chills [None]
  - Blood urea increased [None]
  - Blood creatine increased [None]
  - Hospice care [None]
  - Asthenia [None]
  - Peripheral swelling [None]
  - Alanine aminotransferase increased [None]
  - Blood bilirubin increased [None]
  - Decreased appetite [None]
  - Dyspnoea [None]

NARRATIVE: CASE EVENT DATE: 20201219
